FAERS Safety Report 21553231 (Version 1)
Quarter: 2022Q4

REPORT INFORMATION
  Report Type: Report from Study
  Country: CA (occurrence: CA)
  Receive Date: 20221104
  Receipt Date: 20221104
  Transmission Date: 20230112
  Serious: Yes (Other)
  Sender: FDA-Public Use
  Company Number: CA-BRISTOL-MYERS SQUIBB COMPANY-2022-024919

PATIENT
  Age: 73 Year
  Sex: Male
  Weight: 73.94 kg

DRUGS (4)
  1. OPDIVO [Suspect]
     Active Substance: NIVOLUMAB
     Indication: Oesophageal carcinoma
     Route: 042
     Dates: start: 20220405, end: 20221025
  2. FLUOROURACIL [Suspect]
     Active Substance: FLUOROURACIL
     Indication: Oesophageal carcinoma
     Dosage: Q2WEEKS
     Route: 042
     Dates: start: 20220405
  3. OXALIPLATIN [Suspect]
     Active Substance: OXALIPLATIN
     Indication: Oesophageal carcinoma
     Dosage: Q2WEEKS
     Route: 042
     Dates: start: 20220405
  4. LEVOTHYROXINE SODIUM [Concomitant]
     Active Substance: LEVOTHYROXINE SODIUM
     Indication: Product used for unknown indication
     Route: 065
     Dates: start: 20220705

REACTIONS (35)
  - Arthralgia [Recovering/Resolving]
  - Condition aggravated [Recovering/Resolving]
  - Nausea [Unknown]
  - Influenza like illness [Not Recovered/Not Resolved]
  - Onychoclasis [Not Recovered/Not Resolved]
  - Dyspepsia [Unknown]
  - Pollakiuria [Unknown]
  - Fatigue [Recovering/Resolving]
  - Weight decreased [Unknown]
  - Peripheral coldness [Not Recovered/Not Resolved]
  - Dizziness [Recovered/Resolved]
  - Thyroid disorder [Unknown]
  - Skin atrophy [Not Recovered/Not Resolved]
  - Contusion [Not Recovered/Not Resolved]
  - Gait disturbance [Unknown]
  - Peripheral swelling [Recovering/Resolving]
  - Asthenia [Unknown]
  - Urine odour abnormal [Unknown]
  - Feeling abnormal [Unknown]
  - Somnolence [Recovered/Resolved]
  - Weight increased [Unknown]
  - Neck pain [Recovered/Resolved]
  - Cough [Unknown]
  - Decreased appetite [Recovering/Resolving]
  - Temperature intolerance [Not Recovered/Not Resolved]
  - Alopecia [Unknown]
  - Musculoskeletal stiffness [Recovered/Resolved]
  - Dyspnoea [Unknown]
  - Diarrhoea [Unknown]
  - Malaise [Recovering/Resolving]
  - Weight fluctuation [Recovering/Resolving]
  - Muscular weakness [Not Recovered/Not Resolved]
  - Memory impairment [Recovering/Resolving]
  - Malignant neoplasm progression [Not Recovered/Not Resolved]
  - Lung disorder [Unknown]

NARRATIVE: CASE EVENT DATE: 20220405
